FAERS Safety Report 23300724 (Version 1)
Quarter: 2023Q4

REPORT INFORMATION
  Report Type: Spontaneous
  Country: US (occurrence: US)
  Receive Date: 20231215
  Receipt Date: 20231215
  Transmission Date: 20240109
  Serious: No
  Sender: FDA-Public Use
  Company Number: US-BoehringerIngelheim-2023-BI-278550

PATIENT
  Sex: Male

DRUGS (1)
  1. TRADJENTA [Suspect]
     Active Substance: LINAGLIPTIN
     Indication: Product used for unknown indication
     Dates: start: 2023

REACTIONS (5)
  - Arthralgia [Unknown]
  - Rash [Unknown]
  - Pain in extremity [Unknown]
  - Peripheral swelling [Unknown]
  - Feeling abnormal [Unknown]
